FAERS Safety Report 6717240-9 (Version None)
Quarter: 2010Q2

REPORT INFORMATION
  Report Type: 
  Country: None (occurrence: None)
  Receive Date: 20100510
  Receipt Date: 20100505
  Transmission Date: 20101027
  Serious: Yes (Death, Hospitalization)
  Sender: FDA-Public Use
  Company Number: PHEH2009US10811

PATIENT
  Sex: Male
  Weight: 73.48 kg

DRUGS (23)
  1. EXJADE [Suspect]
     Indication: MYELODYSPLASTIC SYNDROME
     Dosage: 500 MG, DAILY
     Route: 048
     Dates: start: 20081114
  2. EXJADE [Suspect]
     Indication: IRON OVERLOAD
  3. WARFARIN SODIUM [Concomitant]
     Dosage: 5 MG, QD
     Route: 048
     Dates: start: 20090630
  4. COMPAZINE [Concomitant]
     Indication: NAUSEA
     Dosage: 10 MG, Q6H PRN
     Route: 048
     Dates: start: 20090501
  5. CALCIUM CARBONATE W/VITAMIN D NOS [Concomitant]
     Dosage: TWO 600MG/400MG TABS,BID
     Route: 048
     Dates: start: 20071130
  6. MAGNESIUM [Concomitant]
     Dosage: 400 MG, QD
     Route: 048
     Dates: start: 20080812
  7. ALLOPURINOL [Concomitant]
     Dosage: 100 MG, QD
     Route: 048
     Dates: start: 20080812
  8. DOCUSATE SODIUM [Concomitant]
     Dosage: 250 MG, QHS PRN
     Route: 048
     Dates: start: 20090407
  9. DEXAMETHASONE [Concomitant]
     Dosage: 4 MG, BID
     Route: 048
     Dates: start: 20081229
  10. ONDANSETRON HYDROCHLORIDE [Concomitant]
     Dosage: 8 MG, PRIOR TO CHEMO TREATMENT
     Route: 048
     Dates: start: 20081229
  11. CLOTRIMAZOLE [Concomitant]
     Dosage: 10 MG, UNK
     Dates: start: 20081114
  12. METAMUCIL-2 [Concomitant]
     Dosage: 1 PACKET, QD
     Dates: start: 20080812
  13. FLONASE [Concomitant]
     Dosage: 50 MCG, BID
     Route: 045
     Dates: start: 20080812
  14. TYLENOL (CAPLET) [Concomitant]
     Dosage: 500 MG, PRN
     Dates: start: 20080812
  15. ROCALTROL [Concomitant]
     Dosage: 0.25 MCG, QD
     Route: 048
     Dates: start: 20080812
  16. PLENDIL [Concomitant]
     Dosage: 5 MG, QD
     Route: 048
     Dates: start: 20080812
  17. PREDNISONE [Concomitant]
     Dosage: TAPER
     Dates: start: 20080724
  18. ALTACE [Concomitant]
     Dosage: 2.5 MG, BID
     Route: 048
     Dates: start: 20061204
  19. CHROMAGEN [Concomitant]
     Dosage: UNK
     Route: 048
     Dates: start: 20061013
  20. PRILOSEC [Concomitant]
     Dosage: 20 MG, QD
     Route: 048
     Dates: start: 20061013
  21. LOPRESSOR HCT [Concomitant]
     Dosage: 50MG/25MG, QD
     Route: 048
     Dates: start: 20061013
  22. ZOLOFT [Concomitant]
     Dosage: HALF 50 MG TABLET, QD
     Route: 048
     Dates: start: 20061013
  23. ADVIL [Concomitant]
     Dosage: 200 MG, UNK
     Dates: start: 20061013

REACTIONS (2)
  - DEATH [None]
  - DYSSTASIA [None]
